FAERS Safety Report 20452685 (Version 1)
Quarter: 2022Q1

REPORT INFORMATION
  Report Type: Spontaneous
  Country: IT (occurrence: IT)
  Receive Date: 20220210
  Receipt Date: 20220210
  Transmission Date: 20220424
  Serious: Yes (Congenital Anomaly, Other)
  Sender: FDA-Public Use
  Company Number: IT-SUN PHARMACEUTICAL INDUSTRIES LTD-2022R1-326111

PATIENT
  Age: 20 Day

DRUGS (2)
  1. METHIMAZOLE [Suspect]
     Active Substance: METHIMAZOLE
     Indication: Hyperthyroidism
     Dosage: 5 MILLIGRAM, QD
     Route: 064
  2. PROPYLTHIOURACIL [Suspect]
     Active Substance: PROPYLTHIOURACIL
     Indication: Hyperthyroidism
     Dosage: 50 MILLIGRAM, DAILY
     Route: 065

REACTIONS (2)
  - Foetal exposure during pregnancy [Unknown]
  - Aplasia cutis congenita [Unknown]
